FAERS Safety Report 9109466 (Version 1)
Quarter: 2013Q1

REPORT INFORMATION
  Report Type: Spontaneous
  Country: US (occurrence: US)
  Receive Date: 20130222
  Receipt Date: 20130222
  Transmission Date: 20140127
  Serious: Yes (Hospitalization)
  Sender: FDA-Public Use
  Company Number: US-JNJFOC-20130209308

PATIENT
  Age: 49 None
  Sex: Female
  Weight: 53.52 kg

DRUGS (3)
  1. REMICADE [Suspect]
     Indication: RHEUMATOID ARTHRITIS
     Route: 042
     Dates: start: 2011
  2. PREDNISONE [Concomitant]
     Route: 048
     Dates: start: 201107
  3. MEDROL [Concomitant]
     Indication: RED BLOOD CELL SEDIMENTATION RATE
     Route: 065
     Dates: start: 201007

REACTIONS (5)
  - Rotator cuff syndrome [Not Recovered/Not Resolved]
  - Drug ineffective [Not Recovered/Not Resolved]
  - Tooth loss [Unknown]
  - Abnormal loss of weight [Unknown]
  - Fatigue [Unknown]
